FAERS Safety Report 24547342 (Version 1)
Quarter: 2024Q4

REPORT INFORMATION
  Report Type: Spontaneous
  Country: US (occurrence: US)
  Receive Date: 20241025
  Receipt Date: 20241025
  Transmission Date: 20250115
  Serious: No
  Sender: DR REDDYS
  Company Number: None

PATIENT
  Age: 5 Decade
  Sex: Female

DRUGS (5)
  1. CARVEDILOL [Suspect]
     Active Substance: CARVEDILOL
     Indication: Coronary artery dissection
  2. SACUBITRIL\VALSARTAN [Concomitant]
     Active Substance: SACUBITRIL\VALSARTAN
     Indication: Stress cardiomyopathy
  3. ESCITALOPRAM [Concomitant]
     Active Substance: ESCITALOPRAM OXALATE
     Indication: Product used for unknown indication
  4. ASPIRIN [Concomitant]
     Active Substance: ASPIRIN
     Indication: Coronary artery dissection
     Dosage: CHEWABLE
     Route: 050
  5. ASPIRIN [Concomitant]
     Active Substance: ASPIRIN
     Dosage: CHEWABLE
     Route: 050

REACTIONS (2)
  - Depression [Unknown]
  - Fatigue [Unknown]
